FAERS Safety Report 5366694-1 (Version None)
Quarter: 2007Q2

REPORT INFORMATION
  Report Type: 
  Country: None (occurrence: None)
  Receive Date: 20070619
  Receipt Date: 20070608
  Transmission Date: 20071010
  Serious: Yes (Hospitalization)
  Sender: FDA-Public Use
  Company Number: 234430K07USA

PATIENT
  Age: 73 Year
  Sex: Male
  Weight: 95.2554 kg

DRUGS (7)
  1. REBIF [Suspect]
     Indication: MULTIPLE SCLEROSIS
     Dosage: 44 MCG; 3 IN 1 WEEKS, SUBCUTANEOUS
     Route: 058
     Dates: start: 20040915
  2. TOPROL-XL [Concomitant]
  3. AVANDAMET [Concomitant]
  4. COUMADIN [Concomitant]
  5. LASIX [Concomitant]
  6. BACLOFEN [Concomitant]
  7. NEURONTIN [Concomitant]

REACTIONS (6)
  - ANAEMIA [None]
  - ASTHENIA [None]
  - FALL [None]
  - HIP FRACTURE [None]
  - INJECTION SITE BRUISING [None]
  - NASOPHARYNGITIS [None]
